FAERS Safety Report 4695113-3 (Version None)
Quarter: 2005Q2

REPORT INFORMATION
  Report Type: 
  Country: None (occurrence: None)
  Receive Date: 20050617
  Receipt Date: 20050606
  Transmission Date: 20051028
  Serious: Yes (Hospitalization)
  Sender: FDA-Public Use
  Company Number: 2005084883

PATIENT
  Age: 49 Year
  Sex: Male

DRUGS (6)
  1. VORICONAZOLE (VORICONAZOLE) [Suspect]
     Indication: ILL-DEFINED DISORDER
     Dosage: ORAL
     Route: 048
  2. CYCLOSPORINE [Suspect]
     Indication: ILL-DEFINED DISORDER
     Dosage: 200 MG (100 MG, BID), ORAL
     Route: 048
     Dates: start: 20050411, end: 20050510
  3. MYCOPHENOLATE MOFETIL (MYCOPHENOLATE MOFETIL) [Concomitant]
  4. AMOXICILLINE SEL DE NA (AMOXICILLIN SODIUM) [Concomitant]
  5. VALACICLOVIR CHLORHYDRATE (VALACICLOVIR HYDROCHLORIDE) [Concomitant]
  6. COTRIMOXAZOLE (SULFAMETHOXAZOLE) (SULFAMETHOXAZOLE, TRIMETHOPRIM) [Concomitant]

REACTIONS (6)
  - ABDOMINAL PAIN [None]
  - ASTHENIA [None]
  - DRUG INTERACTION [None]
  - OVERDOSE [None]
  - PSYCHOMOTOR RETARDATION [None]
  - STUPOR [None]
